FAERS Safety Report 24411275 (Version 1)
Quarter: 2024Q4

REPORT INFORMATION
  Report Type: Spontaneous
  Country: EG (occurrence: EG)
  Receive Date: 20241008
  Receipt Date: 20241008
  Transmission Date: 20250114
  Serious: Yes (Life-Threatening)
  Sender: PFIZER
  Company Number: EG-PFIZER INC-PV202400128861

PATIENT
  Age: 51 Year
  Sex: Female
  Weight: 90 kg

DRUGS (10)
  1. CARBOPLATIN [Suspect]
     Active Substance: CARBOPLATIN
     Indication: Endometrial cancer
     Dosage: UNK, CYCLIC - W1 ONLY
     Dates: start: 20240525
  2. CARBOPLATIN [Suspect]
     Active Substance: CARBOPLATIN
     Dosage: 450 MG, SINGLE
     Route: 041
     Dates: start: 20240916
  3. PACLITAXEL [Suspect]
     Active Substance: PACLITAXEL
     Indication: Endometrial cancer
     Dosage: UNK, CYCLIC - W1,W2,W3
     Dates: start: 20240525
  4. PACLITAXEL [Suspect]
     Active Substance: PACLITAXEL
     Dosage: 140 MG, SINGLE SINGLE (100 MG AND 30 MG VIAL (AS REPORTED))
     Route: 041
     Dates: start: 20240916
  5. PACLITAXEL [Suspect]
     Active Substance: PACLITAXEL
     Dosage: 140 MG, SINGLE (100 MG AND 30 MG VIAL (AS REPORTED))
     Route: 041
     Dates: start: 20240916
  6. PACLITAXEL [Suspect]
     Active Substance: PACLITAXEL
     Dosage: 140 MG, SINGLE (C6W2)
     Route: 041
     Dates: start: 20240923
  7. DEXAMETHASONE [Concomitant]
     Active Substance: DEXAMETHASONE
     Indication: Premedication
     Dosage: UNK
     Dates: start: 20240525
  8. PHENIRAMINE [Concomitant]
     Active Substance: PHENIRAMINE
     Indication: Premedication
     Dosage: UNK
     Dates: start: 20240525
  9. EM EX [Concomitant]
     Indication: Premedication
     Dosage: UNK
     Dates: start: 20240525
  10. ANTODINE [CALCIUM CARBONATE;FAMOTIDINE;MAGNESIUM HYDROXIDE] [Concomitant]
     Indication: Premedication
     Dosage: UNK
     Dates: start: 20240525

REACTIONS (3)
  - Dyspnoea [Recovered/Resolved]
  - Hypotension [Recovered/Resolved]
  - Off label use [Unknown]

NARRATIVE: CASE EVENT DATE: 20240525
